FAERS Safety Report 4993258-1 (Version None)
Quarter: 2006Q1

REPORT INFORMATION
  Report Type: 
  Country: None (occurrence: None)
  Receive Date: 20060314
  Receipt Date: 20050315
  Transmission Date: 20060701
  Serious: Yes (Other)
  Sender: FDA-Public Use
  Company Number: 200511089BCC

PATIENT
  Sex: Male

DRUGS (2)
  1. ALEVE [Suspect]
     Indication: BACK DISORDER
  2. HOSPITAL GRADE NAPROXEN (NAPROXEN) [Suspect]

REACTIONS (1)
  - GASTRIC ULCER PERFORATION [None]
